FAERS Safety Report 5755870-1 (Version None)
Quarter: 2008Q2

REPORT INFORMATION
  Report Type: 
  Country: None (occurrence: None)
  Receive Date: 20080528
  Receipt Date: 20080513
  Transmission Date: 20081010
  Serious: Yes (Hospitalization)
  Sender: FDA-Public Use
  Company Number: A-US2008-20469

PATIENT
  Age: 47 Year
  Sex: Female
  Weight: 47.6 kg

DRUGS (6)
  1. TRACLEER [Suspect]
     Indication: PULMONARY HYPERTENSION
     Dosage: 125 MG, BID, ORAL, 62.5 MG, BID, ORAL
     Route: 048
     Dates: start: 20040901, end: 20041001
  2. TRACLEER [Suspect]
     Indication: PULMONARY HYPERTENSION
     Dosage: 125 MG, BID, ORAL, 62.5 MG, BID, ORAL
     Route: 048
     Dates: start: 20041001, end: 20080424
  3. AMBIEN [Concomitant]
  4. NEXIUM (ESOMEPRAZOLE SODIUM) [Concomitant]
  5. PREDNISONE TAB [Concomitant]
  6. LISINOPRIL [Concomitant]

REACTIONS (21)
  - ABDOMINAL PAIN LOWER [None]
  - ALANINE AMINOTRANSFERASE INCREASED [None]
  - ASPARTATE AMINOTRANSFERASE INCREASED [None]
  - BLOOD BILIRUBIN INCREASED [None]
  - CARDIAC ARREST [None]
  - HEPATIC ISCHAEMIA [None]
  - HYPERHIDROSIS [None]
  - HYPERTENSION [None]
  - HYPOAESTHESIA [None]
  - HYPOTENSION [None]
  - LIVER FUNCTION TEST ABNORMAL [None]
  - MITRAL VALVE INCOMPETENCE [None]
  - PAIN IN EXTREMITY [None]
  - PARAESTHESIA [None]
  - PNEUMONIA [None]
  - POLLAKIURIA [None]
  - PULMONARY FIBROSIS [None]
  - SHOCK [None]
  - SUPRAVENTRICULAR TACHYCARDIA [None]
  - VENTRICULAR HYPERTROPHY [None]
  - VENTRICULAR TACHYCARDIA [None]
